FAERS Safety Report 18504325 (Version 1)
Quarter: 2020Q4

REPORT INFORMATION
  Report Type: Spontaneous
  Country: GB (occurrence: GB)
  Receive Date: 20201114
  Receipt Date: 20201114
  Transmission Date: 20210114
  Serious: Yes (Disabling)
  Sender: FDA-Public Use
  Company Number: GB-ALKEM LABORATORIES LIMITED-GB-ALKEM-2020-04773

PATIENT
  Age: 41 Year
  Sex: Female
  Weight: 48 kg

DRUGS (8)
  1. TRAMADOL. [Concomitant]
     Active Substance: TRAMADOL
     Indication: PAIN
     Dosage: 1 - 2 EVERY 4 HOURS FOR PAIN (MAX 8 TABS DAILY), (EVERY)
     Route: 065
     Dates: start: 20200602, end: 20200630
  2. DESOGESTREL [Concomitant]
     Active Substance: DESOGESTREL
     Indication: CONTRACEPTION
     Dosage: CONTRACEPTION OR TAKE ONE TABLET EVERY DAY WITH., (EVERY)
     Route: 065
     Dates: start: 20200402
  3. SERTRALINE [Concomitant]
     Active Substance: SERTRALINE HYDROCHLORIDE
     Indication: PRODUCT USED FOR UNKNOWN INDICATION
     Dosage: 2 DOSAGE FORM, QD, (EVERY 1 DAY)
     Route: 065
     Dates: start: 20200402
  4. ZOMORPH [Concomitant]
     Active Substance: MORPHINE SULFATE
     Indication: PRODUCT USED FOR UNKNOWN INDICATION
     Dosage: 1 DOSAGE FORM, BID, (EVERY 12 HOUR)
     Route: 065
     Dates: start: 20200528
  5. PREGABALIN. [Suspect]
     Active Substance: PREGABALIN
     Indication: PRODUCT USED FOR UNKNOWN INDICATION
     Dosage: 300 MILLIGRAM, EVERY
     Route: 048
     Dates: start: 20200221
  6. DIAZEPAM. [Concomitant]
     Active Substance: DIAZEPAM
     Indication: PRODUCT USED FOR UNKNOWN INDICATION
     Dosage: 1 DOSAGE FORM, QD, AT NIGHT, (EVERY 1 DAY)
     Route: 065
     Dates: start: 20200409
  7. PROPRANOLOL [Concomitant]
     Active Substance: PROPRANOLOL HYDROCHLORIDE
     Indication: ANXIETY
     Dosage: 1 DOSAGE FORM, QD, (EVERY 1 DAY)
     Route: 065
     Dates: start: 20200225
  8. CELECOXIB. [Concomitant]
     Active Substance: CELECOXIB
     Indication: PRODUCT USED FOR UNKNOWN INDICATION
     Dosage: 1 DOSAGE FORM, QD, (EVERY 1 DAY)
     Route: 065
     Dates: start: 20200709

REACTIONS (1)
  - Peripheral swelling [Recovering/Resolving]
